FAERS Safety Report 11998383 (Version 1)
Quarter: 2016Q1

REPORT INFORMATION
  Report Type: Report from Study
  Country: US (occurrence: US)
  Receive Date: 20160203
  Receipt Date: 20160203
  Transmission Date: 20160526
  Serious: No
  Sender: FDA-Public Use
  Company Number: US-BIOGEN-2013BI012608

PATIENT
  Sex: Female

DRUGS (1)
  1. TYSABRI [Suspect]
     Active Substance: NATALIZUMAB
     Indication: MULTIPLE SCLEROSIS
     Route: 042
     Dates: start: 20120709, end: 20121203

REACTIONS (5)
  - Deafness [Not Recovered/Not Resolved]
  - Memory impairment [Not Recovered/Not Resolved]
  - Amnesia [Unknown]
  - Cognitive disorder [Unknown]
  - Hypoacusis [Not Recovered/Not Resolved]
